FAERS Safety Report 20191289 (Version 1)
Quarter: 2021Q4

REPORT INFORMATION
  Report Type: Spontaneous
  Country: IT (occurrence: IT)
  Receive Date: 20211216
  Receipt Date: 20211216
  Transmission Date: 20220303
  Serious: Yes (Hospitalization, Other)
  Sender: FDA-Public Use
  Company Number: IT-MINISAL02-816816

PATIENT
  Age: 67 Year
  Sex: Male
  Weight: 67 kg

DRUGS (1)
  1. LINEZOLID [Suspect]
     Active Substance: LINEZOLID
     Indication: Implant site infection
     Dosage: 1200 MILLIGRAM, ONCE A DAY
     Route: 065
     Dates: start: 20211116

REACTIONS (3)
  - Transaminases increased [Recovering/Resolving]
  - Thrombocytopenia [Recovering/Resolving]
  - Generalised tonic-clonic seizure [Recovering/Resolving]

NARRATIVE: CASE EVENT DATE: 20211124
